FAERS Safety Report 8317507-7 (Version None)
Quarter: 2012Q2

REPORT INFORMATION
  Report Type: 
  Country: None (occurrence: None)
  Receive Date: 20120427
  Receipt Date: 20120411
  Transmission Date: 20120825
  Serious: Yes (Death, Life-Threatening, Hospitalization, Other)
  Sender: FDA-Public Use
  Company Number: GB-B.I. PHARMACEUTICALS,INC./RIDGEFIELD-2012-UK-00086UK

PATIENT
  Sex: Female
  Weight: 70 kg

DRUGS (26)
  1. AMOXICILLIN [Concomitant]
     Dosage: 500 MG
  2. BISOPROLOL FUMARATE [Concomitant]
     Indication: CORONARY ARTERY BYPASS
     Dosage: 2.5 MG
     Route: 048
  3. EZETIMIBE [Concomitant]
     Indication: MYOCARDIAL INFARCTION
  4. RAMIPRIL [Concomitant]
     Dosage: 5 MG
     Route: 048
  5. SENNA [Concomitant]
     Indication: POST PROCEDURAL CONSTIPATION
     Route: 048
  6. EZETIMIBE [Concomitant]
     Indication: BLOOD CHOLESTEROL INCREASED
  7. IPRATROPIUM BROMIDE [Concomitant]
     Dosage: 2 ANZ
     Route: 055
  8. RANITIDINE [Concomitant]
     Dosage: 150 MG
  9. PRADAXA [Suspect]
     Indication: THROMBOSIS PROPHYLAXIS
     Dosage: 150 MG
     Route: 048
     Dates: start: 20110420, end: 20110424
  10. FENTANYL [Concomitant]
     Route: 062
  11. FERROUS SULFATE TAB [Concomitant]
     Dosage: 200 MG
  12. LACTULOSE [Concomitant]
     Indication: POST PROCEDURAL CONSTIPATION
     Route: 048
  13. DOCOSAHEXAENOIC ACID [Concomitant]
     Dosage: 380 MG
  14. EICOSAPENTAENOIC ACID [Concomitant]
     Dosage: 460 MG
  15. OMEPRAZOLE [Concomitant]
     Indication: DUODENAL ULCER
     Dosage: 10 MG
     Route: 048
  16. CLOPIDOGREL [Concomitant]
     Dosage: 75 MG
  17. OXYCONTIN [Concomitant]
     Indication: PROCEDURAL PAIN
     Dosage: 10 MG
     Route: 048
  18. ALBUTEROL [Concomitant]
     Route: 055
  19. SALMETEROL XINAFOATE [Concomitant]
     Dosage: 1 ANZ
     Route: 055
  20. BISOPROLOL FUMARATE [Concomitant]
     Indication: HYPERTENSION
  21. OXYCODONE HCL [Concomitant]
     Indication: PROCEDURAL PAIN
     Route: 048
  22. VITAMIN TAB [Concomitant]
     Dosage: 1 ANZ
  23. BISOPROLOL FUMARATE [Concomitant]
     Indication: MYOCARDIAL INFARCTION
  24. EZETIMIBE [Concomitant]
     Indication: CORONARY ARTERY BYPASS
     Dosage: 10 MG
     Route: 048
  25. LEVOTHYROXINE SODIUM [Concomitant]
     Dosage: 50 MCG
  26. ACETAMINOPHEN [Concomitant]
     Indication: PROCEDURAL PAIN
     Dosage: 1 G
     Route: 048

REACTIONS (18)
  - UPPER GASTROINTESTINAL HAEMORRHAGE [None]
  - MUCOSAL ULCERATION [None]
  - HAEMATEMESIS [None]
  - HYPOTENSION [None]
  - PALLOR [None]
  - PERIPHERAL CIRCULATORY FAILURE [None]
  - COAGULATION TEST ABNORMAL [None]
  - BODY TEMPERATURE DECREASED [None]
  - MALAISE [None]
  - MULTI-ORGAN FAILURE [None]
  - RENAL FAILURE [None]
  - INFLAMMATION OF WOUND [None]
  - RENAL FAILURE ACUTE [None]
  - CARDIAC FAILURE [None]
  - PNEUMOTHORAX [None]
  - ABDOMINAL PAIN [None]
  - DUODENAL ULCER [None]
  - HYPERHIDROSIS [None]
